FAERS Safety Report 7621154-X (Version None)
Quarter: 2011Q3

REPORT INFORMATION
  Report Type: 
  Country: None (occurrence: None)
  Receive Date: 20110719
  Receipt Date: 20110711
  Transmission Date: 20111222
  Serious: Yes (Hospitalization)
  Sender: FDA-Public Use
  Company Number: PHHO2008DE04906

PATIENT
  Sex: Male
  Weight: 120 kg

DRUGS (6)
  1. CYCLOSPORINE [Suspect]
     Dosage: 300 MG, BID
     Route: 048
     Dates: start: 20080409
  2. EVEROLIMUS [Suspect]
     Indication: HEART TRANSPLANT
     Dosage: 0.75 MG, BID
     Route: 048
     Dates: start: 20080411
  3. CYCLOSPORINE [Suspect]
     Indication: HEART TRANSPLANT
     Dosage: 80 ML, BID
     Route: 042
     Dates: start: 20080409
  4. FLUVASTATIN SODIUM [Suspect]
     Dosage: 20 MG, QD
     Route: 048
     Dates: start: 20080411, end: 20080415
  5. EVEROLIMUS [Suspect]
     Dosage: 0.5 MG, BID
     Route: 048
     Dates: start: 20080411, end: 20080502
  6. PREDNISOLONE [Concomitant]
     Indication: HEART TRANSPLANT
     Dosage: 90 MG, QD
     Route: 048
     Dates: start: 20080414

REACTIONS (3)
  - WEANING FAILURE [None]
  - RHABDOMYOLYSIS [None]
  - BLOOD CREATINE PHOSPHOKINASE INCREASED [None]
